FAERS Safety Report 14581360 (Version 1)
Quarter: 2018Q1

REPORT INFORMATION
  Report Type: Spontaneous
  Country: AU (occurrence: AU)
  Receive Date: 20180228
  Receipt Date: 20180228
  Transmission Date: 20180509
  Serious: Yes (Other)
  Sender: FDA-Public Use
  Company Number: PHHY2017AU166040

PATIENT
  Age: 99 Year
  Sex: Male

DRUGS (1)
  1. ROSUZET COMPOSITE PACK [Suspect]
     Active Substance: EZETIMIBE\ROSUVASTATIN
     Indication: LOW DENSITY LIPOPROTEIN ABNORMAL
     Route: 048

REACTIONS (4)
  - Rash [Unknown]
  - Pruritus [Unknown]
  - Renal impairment [Unknown]
  - Peripheral vascular disorder [Unknown]
